FAERS Safety Report 9509755 (Version 1)
Quarter: 2013Q1

REPORT INFORMATION
  Report Type: Spontaneous
  Country: US (occurrence: None)
  Receive Date: 20130305
  Receipt Date: 20130305
  Transmission Date: 20140127
  Serious: Yes (Other)
  Sender: FDA-Public Use
  Company Number: 163-21880-12052262

PATIENT
  Age: 54 Year
  Sex: Female

DRUGS (2)
  1. REVLIMID [Suspect]
     Indication: LYMPHATIC DISORDER
     Dosage: 1 IN 1 D
     Route: 048
     Dates: start: 20120516, end: 20120518
  2. PREDNISONE (PREDNISONE) (UNKNOWN) [Concomitant]

REACTIONS (5)
  - Eye swelling [None]
  - Ear swelling [None]
  - Local swelling [None]
  - Local swelling [None]
  - Urticaria [None]
